FAERS Safety Report 7138803-5 (Version None)
Quarter: 2010Q4

REPORT INFORMATION
  Report Type: 
  Country: None (occurrence: None)
  Receive Date: 20101206
  Receipt Date: 20101124
  Transmission Date: 20110411
  Serious: Yes (Congenital Anomaly)
  Sender: FDA-Public Use
  Company Number: TR-ELI_LILLY_AND_COMPANY-TR201011007205

PATIENT
  Sex: Female

DRUGS (4)
  1. HUMULIN R [Suspect]
     Indication: DIABETES MELLITUS
     Dosage: UNK, UNKNOWN
     Route: 064
     Dates: start: 20100101, end: 20100915
  2. HUMULIN N [Suspect]
     Indication: DIABETES MELLITUS
     Dosage: UNK, UNKNOWN
     Route: 064
     Dates: start: 20100101, end: 20100915
  3. ALFAMET [Concomitant]
     Indication: HYPERTENSION
     Dosage: UNK, 4/D
     Route: 064
     Dates: end: 20100915
  4. VITAMINS [Concomitant]
     Dosage: UNK, DAILY (1/D)
     Route: 064
     Dates: end: 20100915

REACTIONS (3)
  - DRUG EXPOSURE DURING PREGNANCY [None]
  - HEART DISEASE CONGENITAL [None]
  - PREMATURE BABY [None]
